FAERS Safety Report 24259508 (Version 1)
Quarter: 2024Q3

REPORT INFORMATION
  Report Type: Spontaneous
  Country: KR (occurrence: KR)
  Receive Date: 20240828
  Receipt Date: 20240828
  Transmission Date: 20241016
  Serious: Yes (Other)
  Sender: AMGEN
  Company Number: KR-KYOWAKIRIN-2024KK019704

PATIENT
  Sex: Female

DRUGS (4)
  1. NEULASTA [Suspect]
     Active Substance: PEGFILGRASTIM
     Indication: Product used for unknown indication
     Dosage: UNK
     Route: 065
  2. TAXOTERE [Concomitant]
     Active Substance: DOCETAXEL
     Indication: Breast cancer
     Dosage: NR
     Route: 065
  3. HERCEPTIN [Concomitant]
     Active Substance: TRASTUZUMAB
     Indication: Breast cancer
     Dosage: NR
     Route: 065
  4. PERJETA [Concomitant]
     Active Substance: PERTUZUMAB
     Indication: Breast cancer
     Dosage: NR
     Route: 065

REACTIONS (2)
  - Myeloblast present [Unknown]
  - Blood disorder [Unknown]
